FAERS Safety Report 7278016-X (Version None)
Quarter: 2011Q1

REPORT INFORMATION
  Report Type: 
  Country: None (occurrence: None)
  Receive Date: 20110207
  Receipt Date: 20110128
  Transmission Date: 20110831
  Serious: Yes (Hospitalization)
  Sender: FDA-Public Use
  Company Number: NL-MEDIMMUNE-MEDI-0012376

PATIENT
  Sex: Male

DRUGS (1)
  1. SYNAGIS [Suspect]
     Route: 030
     Dates: start: 20101231, end: 20101231

REACTIONS (5)
  - VOMITING [None]
  - PYREXIA [None]
  - GASTROINTESTINAL PAIN [None]
  - GASTROINTESTINAL DISORDER [None]
  - DIARRHOEA [None]
